FAERS Safety Report 10238884 (Version 1)
Quarter: 2014Q1

REPORT INFORMATION
  Report Type: Spontaneous
  Country: US (occurrence: None)
  Receive Date: 20140306
  Receipt Date: 20140306
  Transmission Date: 20141002
  Serious: Yes (Hospitalization)
  Sender: FDA-Public Use
  Company Number: 163-21880-13081076

PATIENT
  Age: 46 Year
  Sex: Male

DRUGS (2)
  1. REVLIMID(LENALIDOMIDE)(10 MLLIGRAM,CAPSULES) [Suspect]
     Indication: MYELODYSPLASTIC SYNDROME
     Route: 048
     Dates: start: 20130710
  2. DACOGEN(DECITABINE) [Concomitant]

REACTIONS (2)
  - Myelodysplastic syndrome transformation [None]
  - Acute myeloid leukaemia [None]
